FAERS Safety Report 5702419-5 (Version None)
Quarter: 2008Q2

REPORT INFORMATION
  Report Type: 
  Country: None (occurrence: None)
  Receive Date: 20080411
  Receipt Date: 20080402
  Transmission Date: 20081010
  Serious: Yes (Other)
  Sender: FDA-Public Use
  Company Number: US-JNJFOC-20080400987

PATIENT
  Age: 16 Year
  Sex: Female
  Weight: 112.49 kg

DRUGS (2)
  1. EXTRA STRENGTH TYLENOL [Suspect]
     Route: 048
  2. EXTRA STRENGTH TYLENOL [Suspect]
     Indication: EAR INFECTION
     Route: 048

REACTIONS (1)
  - HEPATIC ENZYME INCREASED [None]
